FAERS Safety Report 23179940 (Version 1)
Quarter: 2023Q4

REPORT INFORMATION
  Report Type: Spontaneous
  Country: US (occurrence: US)
  Receive Date: 20231114
  Receipt Date: 20231114
  Transmission Date: 20240109
  Serious: Yes (Life-Threatening, Hospitalization, Other)
  Sender: FDA-Public Use
  Company Number: US-ALKEM LABORATORIES LIMITED-US-ALKEM-2023-13303

PATIENT
  Age: 43 Year
  Sex: Male

DRUGS (1)
  1. METFORMIN HYDROCHLORIDE [Suspect]
     Active Substance: METFORMIN HYDROCHLORIDE
     Indication: Type 2 diabetes mellitus
     Dosage: 480000 MILLIGRAM
     Route: 048

REACTIONS (10)
  - Hyperkalaemia [Recovering/Resolving]
  - Hypervolaemia [Recovering/Resolving]
  - Lactic acidosis [Recovered/Resolved]
  - Intentional overdose [Unknown]
  - Suicide attempt [Recovering/Resolving]
  - Toxicity to various agents [Unknown]
  - Acute kidney injury [Recovering/Resolving]
  - Gastrointestinal mucosal necrosis [Unknown]
  - Gastrointestinal mucosal exfoliation [Unknown]
  - Hypotension [Unknown]
